FAERS Safety Report 5290344-6 (Version None)
Quarter: 2007Q2

REPORT INFORMATION
  Report Type: 
  Country: None (occurrence: None)
  Receive Date: 20070409
  Receipt Date: 20070330
  Transmission Date: 20071010
  Serious: Yes (Death)
  Sender: FDA-Public Use
  Company Number: US-ELI_LILLY_AND_COMPANY-US200704000079

PATIENT
  Sex: Female

DRUGS (2)
  1. ZYPREXA [Suspect]
     Dosage: UNK, UNK
     Route: 048
     Dates: start: 20040101
  2. PROZAC [Suspect]
     Route: 048
     Dates: start: 20040101

REACTIONS (2)
  - ACUTE HEPATIC FAILURE [None]
  - COMPLETED SUICIDE [None]
